FAERS Safety Report 6084901-7 (Version None)
Quarter: 2009Q1

REPORT INFORMATION
  Report Type: 
  Country: None (occurrence: None)
  Receive Date: 20090220
  Receipt Date: 20090212
  Transmission Date: 20090719
  Serious: No
  Sender: FDA-Public Use
  Company Number: PHEH2008US08857

PATIENT
  Sex: Female
  Weight: 55.329 kg

DRUGS (10)
  1. RECLAST [Suspect]
     Indication: OSTEOPENIA
     Dosage: 5 MG, YEARLY
     Dates: start: 20080924
  2. AMBIEN [Concomitant]
     Dosage: 10 MG, QD
  3. CALCIUM [Concomitant]
     Dosage: 400 MG, 2 QD
     Route: 048
  4. CYTOXAN [Concomitant]
     Dosage: 25 MG, UNK
  5. MULTI-VITAMINS [Concomitant]
     Dosage: UNK, QD
  6. NEURONTIN [Concomitant]
     Indication: NEUROPATHY PERIPHERAL
     Dosage: 100 MG AM, 300 MG HS
  7. OMEGA-EFA [Concomitant]
     Dosage: UNK, QD
  8. PREDNISONE [Concomitant]
     Dosage: 1 MG TABLET, 7 MG DAILY
  9. PRILOSEC [Concomitant]
     Dosage: 40 MG, QD
  10. VITAMIN D [Concomitant]
     Dosage: 50000 IU, QW
     Route: 048

REACTIONS (25)
  - ABDOMINAL PAIN [None]
  - ABSCESS ORAL [None]
  - ALOPECIA [None]
  - ARTHRALGIA [None]
  - BLOOD PRESSURE INCREASED [None]
  - CHEST PAIN [None]
  - CONSTIPATION [None]
  - CONTUSION [None]
  - DRY EYE [None]
  - DRY MOUTH [None]
  - EYE DISORDER [None]
  - EYE SWELLING [None]
  - FACIAL PAIN [None]
  - FAILURE OF IMPLANT [None]
  - FIBROMYALGIA [None]
  - HEADACHE [None]
  - INFLUENZA LIKE ILLNESS [None]
  - JOINT STIFFNESS [None]
  - JOINT SWELLING [None]
  - LIP SWELLING [None]
  - MALAISE [None]
  - OSTEOARTHRITIS [None]
  - OSTEOPOROSIS [None]
  - PAIN [None]
  - TOOTH EXTRACTION [None]
